FAERS Safety Report 7549649-8 (Version None)
Quarter: 2011Q2

REPORT INFORMATION
  Report Type: 
  Country: None (occurrence: None)
  Receive Date: 20110615
  Receipt Date: 20110608
  Transmission Date: 20111010
  Serious: Yes (Other)
  Sender: FDA-Public Use
  Company Number: US-ABBOTT-11P-163-0711959-00

PATIENT
  Sex: Female

DRUGS (1)
  1. HUMIRA [Suspect]
     Indication: PSORIASIS
     Route: 058
     Dates: start: 20100501, end: 20110314

REACTIONS (8)
  - VAGINAL DISCHARGE [None]
  - DISCOMFORT [None]
  - ABDOMINAL PAIN [None]
  - OVARIAN CYST [None]
  - METASTATIC MALIGNANT MELANOMA [None]
  - GYNAECOLOGICAL EXAMINATION ABNORMAL [None]
  - VAGINITIS BACTERIAL [None]
  - PSORIASIS [None]
